FAERS Safety Report 9739726 (Version 2)
Quarter: 2013Q4

REPORT INFORMATION
  Report Type: Spontaneous
  Country: US (occurrence: US)
  Receive Date: 20131209
  Receipt Date: 20131209
  Transmission Date: 20140711
  Serious: Yes (Death, Other)
  Sender: FDA-Public Use
  Company Number: US-ASTELLAS-2013US010014

PATIENT
  Age: 82 Year
  Sex: Male

DRUGS (3)
  1. XTANDI [Suspect]
     Indication: PROSTATE CANCER
     Dosage: 160 MG, UNKNOWN/D
     Route: 048
     Dates: start: 201308, end: 201308
  2. ZOMETA [Concomitant]
     Indication: PROSTATE CANCER
     Dosage: UNK
     Route: 065
     Dates: start: 20111210
  3. LUPRON [Concomitant]
     Indication: PROSTATE CANCER
     Dosage: UNK, EVERY 3 MONTHS
     Route: 065
     Dates: start: 20111210

REACTIONS (4)
  - Drug ineffective [Unknown]
  - Convulsion [Recovered/Resolved]
  - Disturbance in attention [Recovered/Resolved]
  - Malignant neoplasm progression [Fatal]
